FAERS Safety Report 25190245 (Version 1)
Quarter: 2025Q2

REPORT INFORMATION
  Report Type: Spontaneous
  Country: ES (occurrence: ES)
  Receive Date: 20250411
  Receipt Date: 20250411
  Transmission Date: 20250717
  Serious: Yes (Other)
  Sender: TAKEDA
  Company Number: None

PATIENT
  Age: 35 Year
  Sex: Male
  Weight: 60 kg

DRUGS (1)
  1. LISDEXAMFETAMINE DIMESYLATE [Suspect]
     Active Substance: LISDEXAMFETAMINE DIMESYLATE
     Indication: Brain injury
     Dates: start: 20250321, end: 20250322

REACTIONS (1)
  - Faeces hard [Recovered/Resolved]

NARRATIVE: CASE EVENT DATE: 20250321
